FAERS Safety Report 4481143-3 (Version None)
Quarter: 2004Q3

REPORT INFORMATION
  Report Type: 
  Country: None (occurrence: None)
  Receive Date: 20040923
  Receipt Date: 20040624
  Transmission Date: 20050211
  Serious: No
  Sender: FDA-Public Use
  Company Number: USA040567405

PATIENT
  Age: 70 Year
  Sex: Female
  Weight: 49 kg

DRUGS (4)
  1. FORTEO [Suspect]
     Indication: OSTEOPOROSIS
     Dates: start: 20040322
  2. ACETAMINOPHEN [Concomitant]
  3. CALCIUM [Concomitant]
  4. DIOVAN/SCH/(VALSARTAN) [Concomitant]

REACTIONS (10)
  - ARTHRALGIA [None]
  - BACK PAIN [None]
  - BLOOD PRESSURE INCREASED [None]
  - BONE PAIN [None]
  - DECREASED APPETITE [None]
  - DIFFICULTY IN WALKING [None]
  - DYSGEUSIA [None]
  - HEADACHE [None]
  - MUSCULAR WEAKNESS [None]
  - PAIN EXACERBATED [None]
